FAERS Safety Report 25169462 (Version 1)
Quarter: 2025Q2

REPORT INFORMATION
  Report Type: Spontaneous
  Country: BR (occurrence: BR)
  Receive Date: 20250407
  Receipt Date: 20250407
  Transmission Date: 20250716
  Serious: Yes (Death, Other)
  Sender: PFIZER
  Company Number: BR-PFIZER INC-202500072722

PATIENT
  Sex: Male
  Weight: 1.78 kg

DRUGS (10)
  1. PIPERACILLIN SODIUM\TAZOBACTAM SODIUM [Suspect]
     Active Substance: PIPERACILLIN SODIUM\TAZOBACTAM SODIUM
     Indication: Haematological infection
     Dosage: 300 MG/KG, DAILY
  2. PIPERACILLIN SODIUM\TAZOBACTAM SODIUM [Suspect]
     Active Substance: PIPERACILLIN SODIUM\TAZOBACTAM SODIUM
     Indication: Evidence based treatment
  3. MEROPENEM [Suspect]
     Active Substance: MEROPENEM
     Indication: Haematological infection
     Dosage: 120 MG/KG, DAILY
  4. AMPICILLIN [Suspect]
     Active Substance: AMPICILLIN
     Indication: Haematological infection
     Dosage: 200 MG/KG, DAILY
  5. AMPICILLIN [Suspect]
     Active Substance: AMPICILLIN
     Indication: Sepsis neonatal
  6. GENTAMICIN [Suspect]
     Active Substance: GENTAMICIN
     Indication: Haematological infection
  7. GENTAMICIN [Suspect]
     Active Substance: GENTAMICIN
     Indication: Sepsis neonatal
  8. TEICOPLANIN [Suspect]
     Active Substance: TEICOPLANIN
     Indication: Haematological infection
     Dosage: 10 MG/KG, DAILY
  9. POLYMYXIN B [Suspect]
     Active Substance: POLYMYXIN B
     Indication: Haematological infection
     Dosage: 40000 IU/KG, DAILY
  10. DOPAMINE [Concomitant]
     Active Substance: DOPAMINE HYDROCHLORIDE
     Indication: Sepsis neonatal

REACTIONS (2)
  - Drug resistance [Fatal]
  - Off label use [Unknown]
